FAERS Safety Report 17016157 (Version 1)
Quarter: 2019Q4

REPORT INFORMATION
  Report Type: Spontaneous
  Country: US (occurrence: US)
  Receive Date: 20191003
  Receipt Date: 20191003
  Transmission Date: 20200122
  Serious: No
  Sender: FDA-Public Use
  Company Number: None

PATIENT
  Age: 77 Year
  Sex: Female
  Weight: 58.97 kg

DRUGS (4)
  1. FOSAMAX [Suspect]
     Active Substance: ALENDRONATE SODIUM
  2. RAMIPRIL. [Concomitant]
     Active Substance: RAMIPRIL
  3. ELIQUIS [Suspect]
     Active Substance: APIXABAN
     Indication: ATRIAL FIBRILLATION
     Dosage: ?          QUANTITY:2 X DAY;OTHER FREQUENCY:AM (1)/PM (1);?
     Route: 048
     Dates: start: 201901, end: 201908
  4. METROPOLOL [Concomitant]
     Active Substance: METOPROLOL

REACTIONS (7)
  - Therapeutic product effect incomplete [None]
  - Urticaria [None]
  - Dizziness [None]
  - Therapy cessation [None]
  - Pruritus [None]
  - Atrial fibrillation [None]
  - Arthralgia [None]

NARRATIVE: CASE EVENT DATE: 201901
